FAERS Safety Report 5223084-X (Version None)
Quarter: 2007Q1

REPORT INFORMATION
  Report Type: 
  Country: None (occurrence: None)
  Receive Date: 20070129
  Receipt Date: 20070117
  Transmission Date: 20070707
  Serious: Yes (Hospitalization, Other)
  Sender: FDA-Public Use
  Company Number: JP-PFIZER INC-2007005271

PATIENT
  Age: 28 Year
  Sex: Female

DRUGS (3)
  1. GABAPEN [Suspect]
     Indication: EPILEPSY
     Dosage: DAILY DOSE:1600MG
     Route: 048
     Dates: start: 20061101, end: 20061230
  2. ALEVIATIN [Concomitant]
     Route: 048
  3. HYDANTOL [Concomitant]
     Route: 048

REACTIONS (1)
  - STATUS EPILEPTICUS [None]
